FAERS Safety Report 9532362 (Version 1)
Quarter: 2013Q2

REPORT INFORMATION
  Report Type: Spontaneous
  Country: US (occurrence: None)
  Receive Date: 20130418
  Receipt Date: 20130418
  Transmission Date: 20140414
  Serious: No
  Sender: FDA-Public Use
  Company Number: 2012PROUSA02243

PATIENT
  Age: 84 Year
  Sex: Male
  Weight: 81.6 kg

DRUGS (5)
  1. PROVENGE (SIPULEUCEL-T) SUSPENSION, 250ML [Suspect]
     Indication: PROSTATE CANCER METASTATIC
     Dosage: 250 ML, SINGLE, INTRAVENOUS
     Route: 042
     Dates: start: 20121025, end: 20121025
  2. LIPITOR (ATORVASTATIN CALCIUM) [Concomitant]
  3. LISINOPRIL [Concomitant]
  4. VANTAS (HISTRELIN ACETATE) [Concomitant]
  5. ASA (ACETYLSALICYLIC ACID) [Concomitant]

REACTIONS (2)
  - Hypotension [None]
  - Diarrhoea [None]
